FAERS Safety Report 9471069 (Version 2)
Quarter: 2013Q3

REPORT INFORMATION
  Report Type: Spontaneous
  Country: FR (occurrence: FR)
  Receive Date: 20130822
  Receipt Date: 20130822
  Transmission Date: 20140515
  Serious: Yes (Hospitalization)
  Sender: FDA-Public Use
  Company Number: FR-PFIZER INC-2013214194

PATIENT
  Age: 82 Year
  Sex: Female
  Weight: 65 kg

DRUGS (6)
  1. LYRICA [Suspect]
     Indication: NEUROTOXICITY
     Dosage: 25 MG, 2X/DAY
     Route: 048
     Dates: start: 20130710, end: 20130716
  2. INNOHEP [Suspect]
     Indication: DEEP VEIN THROMBOSIS
     Dosage: 0.7 ML, 1X/DAY
     Route: 058
     Dates: start: 20130710, end: 20130716
  3. INNOHEP [Suspect]
     Dosage: UNK
     Dates: start: 201307
  4. SOLU-MEDROL [Concomitant]
     Indication: NEOPLASM
     Dosage: 40 MG, 1X/DAY
     Route: 041
     Dates: start: 20130713, end: 20130721
  5. SEROPLEX [Concomitant]
     Indication: DEPRESSION
     Dosage: 5 MG, 1X/DAY
     Route: 048
     Dates: end: 20130808
  6. DUROGESIC [Concomitant]
     Indication: NEOPLASM
     Dosage: 12 MCG ONCE EVERY 72 HOURS
     Route: 062
     Dates: end: 20130808

REACTIONS (1)
  - Thrombocytopenic purpura [Recovered/Resolved]
